FAERS Safety Report 15804367 (Version 2)
Quarter: 2019Q2

REPORT INFORMATION
  Report Type: Spontaneous
  Country: US (occurrence: US)
  Receive Date: 20190109
  Receipt Date: 20190429
  Transmission Date: 20190711
  Serious: Yes (Hospitalization)
  Sender: FDA-Public Use
  Company Number: US-TAKEDA-2019MPI000602

PATIENT
  Sex: Female
  Weight: 39.46 kg

DRUGS (1)
  1. NINLARO [Suspect]
     Active Substance: IXAZOMIB CITRATE
     Indication: PLASMA CELL MYELOMA
     Dosage: 2.3 MG, UNK
     Route: 048
     Dates: start: 201808

REACTIONS (10)
  - Clostridium difficile infection [Unknown]
  - Gastroenteritis norovirus [Unknown]
  - Pneumonia [Unknown]
  - Diarrhoea [Unknown]
  - Constipation [Unknown]
  - Off label use [Unknown]
  - Blood count abnormal [Unknown]
  - Pain [Unknown]
  - Vision blurred [Unknown]
  - Nausea [Unknown]
